FAERS Safety Report 10084835 (Version 1)
Quarter: 2014Q2

REPORT INFORMATION
  Report Type: Spontaneous
  Country: BR (occurrence: BR)
  Receive Date: 20140417
  Receipt Date: 20140417
  Transmission Date: 20141212
  Serious: Yes (Other)
  Sender: FDA-Public Use
  Company Number: BR-ELI_LILLY_AND_COMPANY-BR201404002356

PATIENT
  Age: 69 Year
  Sex: Male

DRUGS (3)
  1. ALIMTA [Suspect]
     Indication: LUNG ADENOCARCINOMA METASTATIC
     Dosage: UNK, CYCLICAL
     Route: 065
     Dates: start: 201308
  2. CARBOPLATINA [Concomitant]
     Indication: LUNG ADENOCARCINOMA METASTATIC
     Dosage: UNK, CYCLICAL
     Route: 065
  3. TARCEVA [Concomitant]
     Indication: PRODUCT USED FOR UNKNOWN INDICATION
     Dosage: 150 MG, QD
     Route: 065
     Dates: start: 20140226

REACTIONS (5)
  - Upper gastrointestinal haemorrhage [Unknown]
  - Hepatic failure [Unknown]
  - Malignant neoplasm progression [Unknown]
  - Eastern Cooperative Oncology Group performance status worsened [Unknown]
  - Off label use [Unknown]
